FAERS Safety Report 20005824 (Version 2)
Quarter: 2021Q4

REPORT INFORMATION
  Report Type: Spontaneous
  Country: JP (occurrence: JP)
  Receive Date: 20211028
  Receipt Date: 20211123
  Transmission Date: 20220303
  Serious: Yes (Other)
  Sender: FDA-Public Use
  Company Number: JP-009507513-2110JPN007895

PATIENT
  Age: 57 Year
  Sex: Female

DRUGS (3)
  1. DAPTOMYCIN [Suspect]
     Active Substance: DAPTOMYCIN
     Indication: Corynebacterium infection
     Dosage: 6 MILLIGRAM/KILOGRAM, PER DAY
  2. DAPTOMYCIN [Suspect]
     Active Substance: DAPTOMYCIN
     Indication: Staphylococcal infection
     Dosage: 8 MILLIGRAM/KILOGRAM, PER DAY
  3. BEXAROTENE [Concomitant]
     Active Substance: BEXAROTENE
     Route: 048

REACTIONS (2)
  - Pathogen resistance [Unknown]
  - Incorrect dosage administered [Unknown]
